FAERS Safety Report 25857573 (Version 1)
Quarter: 2025Q3

REPORT INFORMATION
  Report Type: Spontaneous
  Country: US (occurrence: US)
  Receive Date: 20250929
  Receipt Date: 20250929
  Transmission Date: 20251020
  Serious: Yes (Death)
  Sender: DAIICHI
  Company Number: US-DSJP-DS-2025-166866-USAA

PATIENT
  Sex: Male

DRUGS (1)
  1. VANFLYTA [Suspect]
     Active Substance: QUIZARTINIB DIHYDROCHLORIDE
     Indication: Acute myeloid leukaemia (in remission)
     Dosage: 35.4 MG, QD (17.7 MG, 2 TABLETS DAILY ON DAYS 6-19 OF A 28 DAY CYCLE)
     Route: 048
     Dates: start: 20250904

REACTIONS (1)
  - Death [Fatal]
